FAERS Safety Report 12856077 (Version 1)
Quarter: 2016Q4

REPORT INFORMATION
  Report Type: Spontaneous
  Country: US (occurrence: US)
  Receive Date: 20161017
  Receipt Date: 20161017
  Transmission Date: 20170207
  Serious: Yes (Hospitalization)
  Sender: FDA-Public Use
  Company Number: None

PATIENT
  Age: 72 Year
  Sex: Female
  Weight: 90 kg

DRUGS (27)
  1. H.P. ACTHAR [Suspect]
     Active Substance: CORTICOTROPIN
     Indication: MULTIPLE SCLEROSIS
     Dosage: ?          QUANTITY:1 INJECTION(S);?
     Route: 030
     Dates: start: 20160831, end: 20160906
  2. GEMFIBROZIL. [Concomitant]
     Active Substance: GEMFIBROZIL
  3. POTASSIUM CHLORIDE. [Concomitant]
     Active Substance: POTASSIUM CHLORIDE
  4. TYLENOL WITH CODEINE [Concomitant]
     Active Substance: ACETAMINOPHEN\CODEINE PHOSPHATE
  5. DILTIAZEM. [Concomitant]
     Active Substance: DILTIAZEM
  6. ESOMEPRAZOLE [Concomitant]
     Active Substance: ESOMEPRAZOLE
  7. MUCINEX [Concomitant]
     Active Substance: GUAIFENESIN
  8. RESTASIS [Concomitant]
     Active Substance: CYCLOSPORINE
  9. VALACYCLOVIR [Concomitant]
     Active Substance: VALACYCLOVIR HYDROCHLORIDE
  10. BABY ASPIRIN [Concomitant]
     Active Substance: ASPIRIN
  11. ALPHALIPOIC ACID [Concomitant]
  12. COQ10 [Concomitant]
     Active Substance: UBIDECARENONE
  13. SYNTHROID [Concomitant]
     Active Substance: LEVOTHYROXINE SODIUM
  14. PROBIOTIC [Concomitant]
     Active Substance: PROBIOTICS NOS
  15. MIRALAX [Concomitant]
     Active Substance: POLYETHYLENE GLYCOL 3350
  16. LORATADINE. [Concomitant]
     Active Substance: LORATADINE
  17. ESTRADIOL VAGINAL RING [Concomitant]
  18. HYDRALAZINE [Concomitant]
     Active Substance: HYDRALAZINE HYDROCHLORIDE
  19. SYMAX [Concomitant]
     Active Substance: HYOSCYAMINE SULFATE
  20. CRANBERRY JUICE EXTRACT [Concomitant]
     Active Substance: CRANBERRY JUICE
  21. BUMETANIDE. [Concomitant]
     Active Substance: BUMETANIDE
  22. TEKTURNA [Concomitant]
     Active Substance: ALISKIREN HEMIFUMARATE
  23. CALCIUM [Concomitant]
     Active Substance: CALCIUM
  24. TAGAMET [Concomitant]
     Active Substance: CIMETIDINE
  25. TIZANIDINE. [Concomitant]
     Active Substance: TIZANIDINE
  26. TURMERIC [Concomitant]
     Active Substance: TURMERIC
  27. CINNAMON. [Concomitant]
     Active Substance: CINNAMON

REACTIONS (8)
  - Stomatitis [None]
  - Dizziness [None]
  - Chills [None]
  - Blood pressure increased [None]
  - Swelling [None]
  - Tachycardia [None]
  - Paraesthesia [None]
  - Headache [None]

NARRATIVE: CASE EVENT DATE: 20160831
